FAERS Safety Report 20863854 (Version 2)
Quarter: 2022Q3

REPORT INFORMATION
  Report Type: Spontaneous
  Country: JP (occurrence: JP)
  Receive Date: 20220523
  Receipt Date: 20220705
  Transmission Date: 20221026
  Serious: Yes (Other)
  Sender: FDA-Public Use
  Company Number: JP-MSD-2205JPN001270J

PATIENT
  Age: 63 Year
  Sex: Female
  Weight: 44 kg

DRUGS (4)
  1. LAGEVRIO [Suspect]
     Active Substance: MOLNUPIRAVIR
     Indication: COVID-19 treatment
     Dosage: 800 MILLIGRAM, BID
     Route: 048
     Dates: start: 20220430, end: 20220505
  2. CALONAL [Concomitant]
     Active Substance: ACETAMINOPHEN
     Indication: Pyrexia
     Dosage: 600 MILLIGRAM, PRN
     Route: 048
     Dates: start: 20220430
  3. CALONAL [Concomitant]
     Active Substance: ACETAMINOPHEN
     Indication: Oropharyngeal pain
  4. TAGRISSO [Concomitant]
     Active Substance: OSIMERTINIB
     Indication: Lung adenocarcinoma
     Dosage: 80 MILLIGRAM, QD
     Route: 048
     Dates: start: 20210204

REACTIONS (1)
  - Diarrhoea [Recovered/Resolved]

NARRATIVE: CASE EVENT DATE: 20220430
